FAERS Safety Report 18054504 (Version 1)
Quarter: 2020Q3

REPORT INFORMATION
  Report Type: Spontaneous
  Country: PT (occurrence: PT)
  Receive Date: 20200722
  Receipt Date: 20200722
  Transmission Date: 20201103
  Serious: Yes (Other)
  Sender: FDA-Public Use
  Company Number: PT-SA-2020SA185309

PATIENT

DRUGS (24)
  1. DOCETAXEL. [Suspect]
     Active Substance: DOCETAXEL
     Indication: BREAST CANCER STAGE III
     Dosage: UNK UNK, Q3W
  2. CAPECITABINE. [Suspect]
     Active Substance: CAPECITABINE
     Indication: BREAST CANCER STAGE III
     Dosage: UNK
     Dates: start: 201609, end: 201701
  3. DOXORUBICIN [Suspect]
     Active Substance: DOXORUBICIN
     Indication: BREAST CANCER STAGE III
     Dosage: UNK UNK, Q3W
  4. CYCLOPHOSPHAMIDE. [Suspect]
     Active Substance: CYCLOPHOSPHAMIDE
     Indication: BREAST CANCER STAGE III
     Dosage: UNK
  5. GOSERELIN [Suspect]
     Active Substance: GOSERELIN
     Indication: BREAST CANCER STAGE III
     Dosage: UNK
     Dates: start: 201710, end: 201803
  6. DENOSUMAB [Suspect]
     Active Substance: DENOSUMAB
     Dosage: UNK
     Dates: start: 201805, end: 201806
  7. LAPATINIB [Suspect]
     Active Substance: LAPATINIB
     Dosage: UNK
     Dates: start: 201805, end: 201806
  8. TRASTUZUMAB. [Suspect]
     Active Substance: TRASTUZUMAB
     Indication: BREAST CANCER STAGE III
     Dosage: UNK
     Dates: start: 201710, end: 201803
  9. TRASTUZUMAB. [Suspect]
     Active Substance: TRASTUZUMAB
     Dosage: UNK
     Dates: start: 201805, end: 201806
  10. DENOSUMAB [Suspect]
     Active Substance: DENOSUMAB
     Dosage: UNK
     Dates: start: 201804, end: 201804
  11. CAPECITABINE. [Suspect]
     Active Substance: CAPECITABINE
     Dosage: UNK
     Dates: start: 201710, end: 201903
  12. LAPATINIB [Suspect]
     Active Substance: LAPATINIB
     Indication: BREAST CANCER STAGE III
     Dosage: UNK
     Dates: start: 201702, end: 201709
  13. CAPECITABINE. [Suspect]
     Active Substance: CAPECITABINE
     Dosage: UNK
     Dates: start: 201702, end: 201709
  14. CISPLATIN. [Suspect]
     Active Substance: CISPLATIN
     Indication: BREAST CANCER STAGE III
     Dosage: UNK
     Dates: start: 201804, end: 201804
  15. DENOSUMAB [Suspect]
     Active Substance: DENOSUMAB
     Indication: BREAST CANCER STAGE III
     Dosage: UNK, Q4W
     Dates: start: 20180301
  16. LETROZOLE. [Suspect]
     Active Substance: LETROZOLE
     Indication: BREAST CANCER STAGE III
     Dosage: UNK
     Dates: start: 201805, end: 201806
  17. EVEROLIMUS. [Suspect]
     Active Substance: EVEROLIMUS
     Indication: BREAST CANCER STAGE III
     Dosage: UNK
     Dates: start: 201807, end: 201903
  18. EXEMESTANE. [Suspect]
     Active Substance: EXEMESTANE
     Indication: BREAST CANCER STAGE III
     Dosage: UNK
     Dates: start: 201807, end: 201903
  19. GOSERELIN [Suspect]
     Active Substance: GOSERELIN
     Dosage: UNK
     Dates: start: 201805, end: 201806
  20. GOSERELIN [Suspect]
     Active Substance: GOSERELIN
     Dosage: UNK
     Dates: start: 201902, end: 201906
  21. LAPATINIB [Suspect]
     Active Substance: LAPATINIB
     Dosage: UNK
     Dates: start: 201807, end: 201903
  22. TRASTUZUMAB. [Suspect]
     Active Substance: TRASTUZUMAB
     Dosage: UNK
     Dates: start: 201804, end: 201804
  23. GOSERELIN [Suspect]
     Active Substance: GOSERELIN
     Dosage: UNK
     Dates: start: 201807, end: 201903
  24. LAPATINIB [Suspect]
     Active Substance: LAPATINIB
     Dosage: UNK
     Dates: start: 201710, end: 201803

REACTIONS (8)
  - Malignant neoplasm progression [Unknown]
  - Therapeutic response decreased [Unknown]
  - Metastases to skin [Unknown]
  - Metastases to lymph nodes [Unknown]
  - Dermatitis [Unknown]
  - Breast cancer stage III [Unknown]
  - Skin lesion [Unknown]
  - Inappropriate schedule of product administration [Unknown]

NARRATIVE: CASE EVENT DATE: 201309
